FAERS Safety Report 5461100-0 (Version None)
Quarter: 2007Q3

REPORT INFORMATION
  Report Type: 
  Country: None (occurrence: None)
  Receive Date: 20070918
  Receipt Date: 20070918
  Transmission Date: 20080115
  Serious: Yes (Hospitalization)
  Sender: FDA-Public Use
  Company Number: None

PATIENT
  Age: 56 Year
  Sex: Male

DRUGS (1)
  1. ROSUVASTATIN [Suspect]
     Indication: HYPERLIPIDAEMIA
     Dosage: 40 MG HS PO
     Route: 048
     Dates: start: 20061221, end: 20070806

REACTIONS (1)
  - MYALGIA [None]
